FAERS Safety Report 4667642-X (Version None)
Quarter: 2005Q2

REPORT INFORMATION
  Report Type: 
  Country: None (occurrence: None)
  Receive Date: 20050520
  Receipt Date: 20040930
  Transmission Date: 20051028
  Serious: Yes (Other)
  Sender: FDA-Public Use
  Company Number: PHNU2004DE03391

PATIENT
  Sex: Female

DRUGS (2)
  1. AREDIA [Suspect]
     Indication: MULTIPLE MYELOMA
     Dosage: 60 MG ONCE IN 4 WEEKS
     Route: 042
     Dates: start: 19960101
  2. AREDIA [Suspect]
     Dosage: 90 MG ONCE IN 4 WEEKS
     Route: 042

REACTIONS (2)
  - OSTEONECROSIS [None]
  - PRIMARY SEQUESTRUM [None]
